FAERS Safety Report 6411786-9 (Version None)
Quarter: 2009Q4

REPORT INFORMATION
  Report Type: 
  Country: None (occurrence: None)
  Receive Date: 20091023
  Receipt Date: 20091014
  Transmission Date: 20100525
  Serious: Yes (Death, Life-Threatening, Hospitalization, Other)
  Sender: FDA-Public Use
  Company Number: JP-BRISTOL-MYERS SQUIBB COMPANY-14563340

PATIENT
  Age: 53 Year
  Sex: Female

DRUGS (14)
  1. SPRYCEL [Suspect]
     Indication: ACUTE LYMPHOCYTIC LEUKAEMIA
     Dosage: INITIATED ON 11MAR09
     Route: 048
     Dates: start: 20090311, end: 20090321
  2. VFEND [Concomitant]
     Dosage: TAKEN FROM 11MAR2009-17MAR2009 19MAR2009-21MAR2009
     Route: 048
     Dates: start: 20090311, end: 20090321
  3. GASTER D [Concomitant]
     Dosage: TAKEN FROM 11MAR2009-17MAR2009 19MAR2009-21MAR2009
     Route: 048
     Dates: start: 20090311, end: 20090319
  4. CRAVIT [Concomitant]
     Dosage: TAKEN FROM 11MAR2009-17MAR2009 19MAR2009-21MAR2009
     Route: 048
     Dates: start: 20090311, end: 20090321
  5. BAKTAR [Concomitant]
     Dosage: TAKEN ON 12MAR2009, 16MAR2009, 19MAR2009
     Route: 048
     Dates: start: 20090312, end: 20090319
  6. PROGRAF [Concomitant]
     Route: 048
     Dates: start: 20090311, end: 20090321
  7. LENDORMIN [Concomitant]
     Dosage: TAKEN FROM 11MAR2009-17MAR2009 19MAR2009-21MAR2009
     Route: 048
     Dates: start: 20090311, end: 20090321
  8. DAONIL [Concomitant]
     Route: 048
     Dates: start: 20090311, end: 20090317
  9. PREDNISOLONE [Concomitant]
     Route: 048
     Dates: start: 20090311, end: 20090317
  10. EUGLUCON [Concomitant]
     Dosage: TAKEN FROM 16MAR2009-17MAR2009 19MAR2009-21MAR2009
     Route: 048
     Dates: start: 20090316, end: 20090321
  11. AZUNOL [Concomitant]
     Dosage: GARGLE LIQUID
  12. PASTARON [Concomitant]
     Route: 062
  13. XYLOCAINE [Concomitant]
  14. LASIX [Concomitant]
     Route: 042
     Dates: start: 20090316, end: 20090324

REACTIONS (10)
  - CHRONIC GRAFT VERSUS HOST DISEASE [None]
  - HAEMATURIA [None]
  - HEPATIC FUNCTION ABNORMAL [None]
  - INFECTION [None]
  - INTERSTITIAL LUNG DISEASE [None]
  - PLATELET COUNT DECREASED [None]
  - PLEURAL EFFUSION [None]
  - PULMONARY HAEMORRHAGE [None]
  - RESPIRATORY DISORDER [None]
  - THROMBOTIC MICROANGIOPATHY [None]
